FAERS Safety Report 12991933 (Version 1)
Quarter: 2016Q4

REPORT INFORMATION
  Report Type: Spontaneous
  Country: US (occurrence: US)
  Receive Date: 20161201
  Receipt Date: 20161201
  Transmission Date: 20170207
  Serious: No
  Sender: FDA-Public Use
  Company Number: US-PFIZER INC-2016552536

PATIENT
  Age: 84 Year
  Sex: Female
  Weight: 59.24 kg

DRUGS (3)
  1. ESTRACE [Concomitant]
     Active Substance: ESTRADIOL
     Dosage: 0.5 MG, 2X/WEEK
     Route: 067
  2. LIPITOR [Concomitant]
     Active Substance: ATORVASTATIN CALCIUM
     Dosage: 20 MG, 1X/DAY
  3. TOVIAZ [Suspect]
     Active Substance: FESOTERODINE FUMARATE
     Indication: HYPERTONIC BLADDER
     Dosage: 4 MG, 1X/DAY

REACTIONS (4)
  - Urinary tract infection [Unknown]
  - Dysuria [Unknown]
  - Condition aggravated [Unknown]
  - Drug ineffective [Unknown]

NARRATIVE: CASE EVENT DATE: 20161114
